FAERS Safety Report 9256924 (Version 1)
Quarter: 2013Q2

REPORT INFORMATION
  Report Type: Spontaneous
  Country: US (occurrence: None)
  Receive Date: 20130424
  Receipt Date: 20130424
  Transmission Date: 20140414
  Serious: Yes (Death, Hospitalization)
  Sender: FDA-Public Use
  Company Number: US-INDICUS PHARMA-000062

PATIENT
  Age: 57 Year
  Sex: Female

DRUGS (11)
  1. METFORMIN HYDROCHLORIDE (METFORMIN HYDROCHLORIDE) [Suspect]
  2. TRAZODONE (TRAZODONE) [Concomitant]
  3. ATORVASTATIN(ATORVASTATIN) [Concomitant]
  4. MIRTAZAPINE (MIRTAZAPINE) [Concomitant]
  5. PIOGLITAZONE (PIOGLITAZONE) [Concomitant]
  6. GLIPZIDE (GLIPZIDE) [Concomitant]
  7. ASPIRIN (ASPIRIN) [Concomitant]
  8. UBIDECARENONE (UBIDECARENONE) [Concomitant]
  9. CLONAZEPAM (CLONAZEPAM) (CLONAZEPAM) [Concomitant]
  10. LOSARTAN (LOSARTAN) [Concomitant]
  11. GLIMEPIRIDE(GLIMEPIRIDE) [Concomitant]

REACTIONS (14)
  - Vomiting [None]
  - Diarrhoea [None]
  - Depressed level of consciousness [None]
  - Hypotension [None]
  - Completed suicide [None]
  - Toxicity to various agents [None]
  - Stomatitis [None]
  - Heart rate increased [None]
  - Blood sodium decreased [None]
  - Blood potassium increased [None]
  - Blood glucose increased [None]
  - Carbon dioxide decreased [None]
  - Haemodialysis [None]
  - Gastric mucosa erythema [None]
